FAERS Safety Report 6574753-0 (Version None)
Quarter: 2010Q1

REPORT INFORMATION
  Report Type: 
  Country: None (occurrence: None)
  Receive Date: 20100209
  Receipt Date: 20100129
  Transmission Date: 20100710
  Serious: Yes (Hospitalization)
  Sender: FDA-Public Use
  Company Number: PHHO2010NL01667

PATIENT
  Sex: Male

DRUGS (1)
  1. ZOLEDRONATE T29581+SOLINJ+BM [Suspect]
     Indication: METASTASES TO BONE
     Dosage: 4 MG
     Route: 042

REACTIONS (5)
  - ARTERIAL BYPASS OPERATION [None]
  - HAEMORRHAGE [None]
  - INFECTION [None]
  - SHOCK HAEMORRHAGIC [None]
  - WOUND HAEMORRHAGE [None]
